FAERS Safety Report 8632319 (Version 3)
Quarter: 2014Q1

REPORT INFORMATION
  Report Type: Spontaneous
  Country: US (occurrence: US)
  Receive Date: 20120625
  Receipt Date: 20140228
  Transmission Date: 20141002
  Serious: Yes (Congenital Anomaly)
  Sender: FDA-Public Use
  Company Number: US-PFIZER INC-2012148563

PATIENT
  Age: 18 Month
  Sex: Male

DRUGS (13)
  1. ZOLOFT [Suspect]
     Indication: DEPRESSION
     Dosage: UNK
     Route: 064
     Dates: start: 2004, end: 2011
  2. ZOLOFT [Suspect]
     Indication: BIPOLAR DISORDER
  3. ZOLOFT [Suspect]
     Indication: ANXIETY
  4. ZOLOFT [Suspect]
     Indication: INSOMNIA
  5. SERTRALINE HCL [Suspect]
     Indication: DEPRESSION
     Dosage: 100 MG, 2X/DAY
     Route: 064
     Dates: start: 2006, end: 2009
  6. SERTRALINE HCL [Suspect]
     Indication: BIPOLAR DISORDER
  7. SERTRALINE HCL [Suspect]
     Indication: ANXIETY
  8. SERTRALINE HCL [Suspect]
     Indication: INSOMNIA
  9. WELLBUTRIN [Concomitant]
     Indication: DEPRESSION
     Dosage: UNK
     Route: 064
  10. LEXAPRO [Concomitant]
     Indication: DEPRESSION
     Dosage: UNK
     Route: 064
  11. PRENATAL VITAMINS [Concomitant]
     Indication: NUTRITIONAL SUPPLEMENTATION
     Dosage: UNK
     Route: 064
  12. AMOXICILLIN [Concomitant]
     Dosage: 50 MG, 2X/DAY
     Route: 064
  13. AZITHROMYCIN [Concomitant]
     Dosage: 250 MG, UNK
     Route: 064

REACTIONS (4)
  - Maternal exposure timing unspecified [Not Recovered/Not Resolved]
  - Congenital anomaly [Unknown]
  - Branchial cyst [Not Recovered/Not Resolved]
  - Asthma [Not Recovered/Not Resolved]
